APPROVED DRUG PRODUCT: NEOMYCIN AND POLYMYXIN B SULFATES, BACITRACIN ZINC AND HYDROCORTISONE
Active Ingredient: BACITRACIN ZINC; HYDROCORTISONE; NEOMYCIN SULFATE; POLYMYXIN B SULFATE
Strength: 400 UNITS/GM;1%;EQ 3.5MG BASE/GM;10,000 UNITS/GM
Dosage Form/Route: OINTMENT;OPHTHALMIC
Application: A064068 | Product #001
Applicant: BAUSCH AND LOMB PHARMACEUTICALS INC
Approved: Oct 30, 1995 | RLD: No | RS: Yes | Type: RX